FAERS Safety Report 7620247-0 (Version None)
Quarter: 2011Q3

REPORT INFORMATION
  Report Type: 
  Country: None (occurrence: None)
  Receive Date: 20110719
  Receipt Date: 20110708
  Transmission Date: 20111222
  Serious: Yes (Hospitalization)
  Sender: FDA-Public Use
  Company Number: CA-JNJFOC-20110705159

PATIENT
  Sex: Female
  Weight: 70 kg

DRUGS (2)
  1. NITROGLYCERIN [Concomitant]
  2. REMICADE [Suspect]
     Indication: CROHN'S DISEASE
     Route: 042

REACTIONS (2)
  - DYSPNOEA [None]
  - CARDIAC DISORDER [None]
